FAERS Safety Report 10523046 (Version 2)
Quarter: 2014Q4

REPORT INFORMATION
  Report Type: Spontaneous
  Country: US (occurrence: US)
  Receive Date: 20141016
  Receipt Date: 20141105
  Transmission Date: 20150528
  Serious: Yes (Hospitalization, Other)
  Sender: FDA-Public Use
  Company Number: US-PFIZER INC-2014283201

PATIENT
  Age: 35 Year
  Sex: Female

DRUGS (1)
  1. ARGATROBAN. [Suspect]
     Active Substance: ARGATROBAN
     Indication: THROMBOSIS PROPHYLAXIS
     Dosage: 1 MCG/KG/MIN
     Route: 042
     Dates: start: 20141010, end: 20141013

REACTIONS (1)
  - Tooth socket haemorrhage [Recovered/Resolved]

NARRATIVE: CASE EVENT DATE: 20141013
